FAERS Safety Report 19641021 (Version 1)
Quarter: 2021Q3

REPORT INFORMATION
  Report Type: Spontaneous
  Country: CA (occurrence: CA)
  Receive Date: 20210730
  Receipt Date: 20210730
  Transmission Date: 20211014
  Serious: Yes (Other)
  Sender: FDA-Public Use
  Company Number: CA-SA-2021SA251250

PATIENT
  Sex: Female
  Weight: 97 kg

DRUGS (23)
  1. CIMZIA [Suspect]
     Active Substance: CERTOLIZUMAB PEGOL
     Indication: PRODUCT USED FOR UNKNOWN INDICATION
     Route: 058
  2. ENBREL [Suspect]
     Active Substance: ETANERCEPT
     Indication: PRODUCT USED FOR UNKNOWN INDICATION
     Route: 058
  3. ISOPROPYL ALCOHOL. [Suspect]
     Active Substance: ISOPROPYL ALCOHOL
  4. ACTEMRA [Suspect]
     Active Substance: TOCILIZUMAB
  5. SULFAMETHOXAZOLE AND TRIMETHOPRIM [Suspect]
     Active Substance: SULFAMETHOXAZOLE\TRIMETHOPRIM
     Indication: PRODUCT USED FOR UNKNOWN INDICATION
     Route: 065
  6. PREDNISONE. [Concomitant]
     Active Substance: PREDNISONE
  7. PARACETAMOL [Suspect]
     Active Substance: ACETAMINOPHEN
  8. CHLORHEXIDINE [Suspect]
     Active Substance: CHLORHEXIDINE
  9. ABATACEPT [Suspect]
     Active Substance: ABATACEPT
  10. OXYCODONE AND ACETAMINOPHEN [Suspect]
     Active Substance: ACETAMINOPHEN\OXYCODONE HYDROCHLORIDE
     Indication: PRODUCT USED FOR UNKNOWN INDICATION
     Route: 065
  11. ARAVA [Suspect]
     Active Substance: LEFLUNOMIDE
     Indication: PRODUCT USED FOR UNKNOWN INDICATION
     Route: 065
  12. METHOTREXATE. [Suspect]
     Active Substance: METHOTREXATE
     Indication: RHEUMATOID ARTHRITIS
     Route: 065
  13. CHLORHEXIDINE GLUCONATE. [Suspect]
     Active Substance: CHLORHEXIDINE GLUCONATE
     Indication: PRODUCT USED FOR UNKNOWN INDICATION
     Route: 065
  14. DESOGESTREL AND ETHINYL ESTRADIOL [Concomitant]
     Active Substance: DESOGESTREL\ETHINYL ESTRADIOL
     Dosage: UNK
  15. MARVELON [Concomitant]
     Active Substance: DESOGESTREL\ETHINYL ESTRADIOL
     Dosage: UNK
  16. PANTOLOC CONTROL [Concomitant]
     Active Substance: PANTOPRAZOLE SODIUM
     Dosage: UNK
  17. PANTOPRAZOLE [Concomitant]
     Active Substance: PANTOPRAZOLE
     Dosage: UNK
  18. ZOPICLONE [Concomitant]
     Active Substance: ZOPICLONE
  19. IBUPROFEN. [Concomitant]
     Active Substance: IBUPROFEN
  20. TYLENOL [Concomitant]
     Active Substance: ACETAMINOPHEN
     Dosage: UNK
  21. OXYCODONE [Suspect]
     Active Substance: OXYCODONE
     Indication: PRODUCT USED FOR UNKNOWN INDICATION
     Route: 065
  22. PERIOGARD [Suspect]
     Active Substance: CHLORHEXIDINE GLUCONATE
     Indication: PRODUCT USED FOR UNKNOWN INDICATION
     Route: 065
  23. SIMPONI [Suspect]
     Active Substance: GOLIMUMAB
     Indication: PRODUCT USED FOR UNKNOWN INDICATION
     Dosage: UNK
     Route: 058

REACTIONS (28)
  - Ill-defined disorder [Unknown]
  - Joint swelling [Unknown]
  - Muscle injury [Unknown]
  - Pyrexia [Unknown]
  - Impaired healing [Unknown]
  - Pruritus [Unknown]
  - Stomatitis [Unknown]
  - Gastrointestinal disorder [Unknown]
  - Drug ineffective [Unknown]
  - Arthralgia [Unknown]
  - Swelling [Unknown]
  - Rash [Unknown]
  - Therapeutic product effect decreased [Unknown]
  - Weight increased [Unknown]
  - Insomnia [Unknown]
  - Lower respiratory tract infection [Unknown]
  - Peripheral swelling [Unknown]
  - Pain [Unknown]
  - Folliculitis [Unknown]
  - Dyspnoea [Unknown]
  - Hypersensitivity [Unknown]
  - Nasopharyngitis [Unknown]
  - Fatigue [Unknown]
  - Sinusitis [Unknown]
  - Infection [Unknown]
  - Blister [Unknown]
  - Confusional state [Unknown]
  - Irritable bowel syndrome [Unknown]
